FAERS Safety Report 14581628 (Version 1)
Quarter: 2018Q1

REPORT INFORMATION
  Report Type: Spontaneous
  Country: US (occurrence: US)
  Receive Date: 20180227
  Receipt Date: 20180227
  Transmission Date: 20180509
  Serious: Yes (Death)
  Sender: FDA-Public Use
  Company Number: None

PATIENT
  Age: 66 Year

DRUGS (1)
  1. TOBRAMYCIN 300MG/5ML SANDOZ [Suspect]
     Active Substance: TOBRAMYCIN
     Indication: LUNG DISORDER
     Route: 055
     Dates: start: 20160405, end: 20180102

REACTIONS (1)
  - Death [None]
